FAERS Safety Report 7456579-9 (Version None)
Quarter: 2011Q2

REPORT INFORMATION
  Report Type: 
  Country: None (occurrence: None)
  Receive Date: 20110503
  Receipt Date: 20110203
  Transmission Date: 20111010
  Serious: Yes (Hospitalization, Other)
  Sender: FDA-Public Use
  Company Number: PHHY2011US06926

PATIENT
  Sex: Male

DRUGS (10)
  1. AFINITOR [Suspect]
     Indication: RENAL CELL CARCINOMA
     Dosage: 10 MG, QD
     Route: 048
     Dates: start: 20100914, end: 20110113
  2. FERROUS SULFATE TAB [Concomitant]
     Dosage: 325 MG, TID
     Route: 048
  3. PLETAL [Concomitant]
  4. CENTRUM SILVER [Concomitant]
  5. COZAAR [Concomitant]
     Dosage: 25 MG, BID
     Route: 048
  6. LANTUS [Concomitant]
  7. LOSARTAN POTASSIUM [Concomitant]
  8. POTASSIUM [Concomitant]
  9. LASIX [Concomitant]
  10. FOLIC ACID [Concomitant]

REACTIONS (23)
  - EJECTION FRACTION DECREASED [None]
  - DYSPNOEA [None]
  - CARDIAC FAILURE CONGESTIVE [None]
  - CACHEXIA [None]
  - CHRONIC OBSTRUCTIVE PULMONARY DISEASE [None]
  - COUGH [None]
  - UPPER RESPIRATORY TRACT INFECTION [None]
  - ABASIA [None]
  - PULMONARY OEDEMA [None]
  - CHEST DISCOMFORT [None]
  - THROAT IRRITATION [None]
  - OSTEOARTHRITIS [None]
  - ATELECTASIS [None]
  - OEDEMA PERIPHERAL [None]
  - HYPERTENSION [None]
  - ORTHOPNOEA [None]
  - ARTERIAL STENOSIS [None]
  - SKIN ULCER [None]
  - ASTHENIA [None]
  - PULMONARY CONGESTION [None]
  - LOCALISED INFECTION [None]
  - PLEURAL EFFUSION [None]
  - FLUID RETENTION [None]
